FAERS Safety Report 6522684-4 (Version None)
Quarter: 2009Q4

REPORT INFORMATION
  Report Type: 
  Country: None (occurrence: None)
  Receive Date: 20091230
  Receipt Date: 20091217
  Transmission Date: 20100525
  Serious: Yes (Other)
  Sender: FDA-Public Use
  Company Number: AU-SANOFI-AVENTIS-A01200911068

PATIENT
  Sex: Male

DRUGS (10)
  1. PLAVIX [Suspect]
     Dosage: UNK
     Route: 048
     Dates: start: 20081201
  2. PLAVIX [Suspect]
     Indication: CORONARY ARTERY DISEASE
     Dosage: UNK
     Route: 048
     Dates: start: 20081201
  3. SOMAC [Concomitant]
     Indication: DRUG USE FOR UNKNOWN INDICATION
     Dosage: UNK
  4. RAMIPRIL [Concomitant]
     Indication: DRUG USE FOR UNKNOWN INDICATION
     Dosage: UNK
  5. CRESTOR [Concomitant]
     Indication: DRUG USE FOR UNKNOWN INDICATION
     Dosage: UNK
  6. NOVOMIX [Concomitant]
     Indication: DRUG USE FOR UNKNOWN INDICATION
     Dosage: UNK
  7. DIAMICRON [Concomitant]
     Indication: DRUG USE FOR UNKNOWN INDICATION
     Dosage: UNK
  8. METFORMIN [Concomitant]
     Indication: DRUG USE FOR UNKNOWN INDICATION
     Dosage: UNK
  9. AMLODIPINE BESYLATE [Concomitant]
     Indication: DRUG USE FOR UNKNOWN INDICATION
     Dosage: UNK
  10. CARTIA /AUS/ [Concomitant]
     Indication: DRUG USE FOR UNKNOWN INDICATION
     Dosage: UNK

REACTIONS (4)
  - CIRCULATORY COLLAPSE [None]
  - CONTUSION [None]
  - DEVICE OCCLUSION [None]
  - HYPOTENSION [None]
